FAERS Safety Report 15004294 (Version 1)
Quarter: 2018Q2

REPORT INFORMATION
  Report Type: Spontaneous
  Country: JP (occurrence: JP)
  Receive Date: 20180613
  Receipt Date: 20180613
  Transmission Date: 20180711
  Serious: Yes (Hospitalization, Other)
  Sender: FDA-Public Use
  Company Number: JP-LUPIN PHARMACEUTICALS INC.-2018-04331

PATIENT
  Age: 70 Year
  Sex: Female

DRUGS (1)
  1. CEFTRIAXONE. [Suspect]
     Active Substance: CEFTRIAXONE
     Indication: LUNG INFECTION
     Dosage: UNK
     Route: 065

REACTIONS (3)
  - Pseudocholelithiasis [Recovering/Resolving]
  - Cholelithiasis [Recovering/Resolving]
  - Bile duct stone [Recovering/Resolving]
